FAERS Safety Report 7236528-9 (Version None)
Quarter: 2011Q1

REPORT INFORMATION
  Report Type: 
  Country: None (occurrence: None)
  Receive Date: 20110120
  Receipt Date: 20110114
  Transmission Date: 20110831
  Serious: Yes (Hospitalization, Other)
  Sender: FDA-Public Use
  Company Number: US-AMGEN-USASP2011002852

PATIENT

DRUGS (25)
  1. REVLIMID [Suspect]
     Indication: MULTIPLE MYELOMA
     Dosage: 25 MG, UNK
     Route: 048
     Dates: start: 20100512
  2. OXYCONTIN [Concomitant]
  3. ZOMETA [Concomitant]
  4. NEUPOGEN [Suspect]
     Indication: PRODUCT USED FOR UNKNOWN INDICATION
  5. VELCADE [Suspect]
  6. FLUCONAZOLE [Concomitant]
  7. NEOMYCIN [Concomitant]
  8. AMITRIPTYLINE [Concomitant]
  9. VITAMIN B12                        /00056201/ [Concomitant]
  10. OXYCODONE HCL [Concomitant]
  11. ZOFRAN [Concomitant]
  12. LEVAQUIN [Concomitant]
  13. FOLIC ACID [Concomitant]
  14. CYTOXAN [Concomitant]
     Dosage: 2 G/M2, UNK
     Dates: start: 20101001
  15. DEXAMETHASONE [Suspect]
  16. POTASSIUM CHLORIDE [Concomitant]
  17. ASPIRIN [Concomitant]
  18. ANTIBIOTICS [Concomitant]
  19. CODEINE [Concomitant]
  20. MULTI-VITAMINS [Concomitant]
  21. METAMUCIL                          /00029101/ [Concomitant]
  22. FLEXERIL [Concomitant]
  23. LOMOTIL                            /00034001/ [Concomitant]
  24. MAGNESIUM OXIDE [Concomitant]
  25. MORPHINE [Concomitant]
     Dosage: UNK
     Dates: start: 20101105

REACTIONS (5)
  - ADDISON'S DISEASE [None]
  - DIZZINESS POSTURAL [None]
  - DIARRHOEA [None]
  - NEUROPATHY PERIPHERAL [None]
  - BACK PAIN [None]
